FAERS Safety Report 6396011-X (Version None)
Quarter: 2009Q4

REPORT INFORMATION
  Report Type: 
  Country: None (occurrence: None)
  Receive Date: 20091007
  Receipt Date: 20090917
  Transmission Date: 20100525
  Serious: Yes (Other)
  Sender: FDA-Public Use
  Company Number: 2009SP026594

PATIENT
  Age: 20 Year
  Sex: Male

DRUGS (3)
  1. CORICIDIN [Suspect]
     Indication: DRUG USE FOR UNKNOWN INDICATION
     Dosage: 24 DF; PO
     Route: 048
  2. MARIJUANA [Suspect]
     Indication: DRUG USE FOR UNKNOWN INDICATION
     Dosage: INH
     Route: 055
  3. PROZAC [Suspect]
     Indication: DRUG USE FOR UNKNOWN INDICATION

REACTIONS (11)
  - BLEPHAROSPASM [None]
  - DRUG ABUSE [None]
  - DYSARTHRIA [None]
  - EYELID PTOSIS [None]
  - FLUSHING [None]
  - GAIT DISTURBANCE [None]
  - INCORRECT DOSE ADMINISTERED [None]
  - LACRIMATION INCREASED [None]
  - MYDRIASIS [None]
  - NYSTAGMUS [None]
  - ROAD TRAFFIC ACCIDENT [None]
